FAERS Safety Report 16625511 (Version 5)
Quarter: 2019Q3

REPORT INFORMATION
  Report Type: Report from Study
  Country: US (occurrence: US)
  Receive Date: 20190724
  Receipt Date: 20190930
  Transmission Date: 20191004
  Serious: Yes (Hospitalization)
  Sender: FDA-Public Use
  Company Number: PHHO2019US007422

PATIENT
  Age: 63 Year
  Sex: Male
  Weight: 69 kg

DRUGS (6)
  1. GSK2118436 [Suspect]
     Active Substance: DABRAFENIB
     Dosage: 150 MG, BID
     Route: 048
     Dates: start: 20190624, end: 20190705
  2. GSK2118436 [Suspect]
     Active Substance: DABRAFENIB
     Dosage: DOSE REDUCED
     Route: 048
  3. GSK2118436 [Suspect]
     Active Substance: DABRAFENIB
     Indication: MALIGNANT MELANOMA
     Dosage: 150 MG, BID
     Route: 048
     Dates: start: 20190513, end: 20190705
  4. GSK1120212 [Suspect]
     Active Substance: TRAMETINIB
     Dosage: DOSE REDUCED
     Route: 048
  5. GSK1120212 [Suspect]
     Active Substance: TRAMETINIB
     Indication: MALIGNANT MELANOMA
     Dosage: 2 MG, QD
     Route: 048
     Dates: start: 20190330, end: 20190705
  6. GSK1120212 [Suspect]
     Active Substance: TRAMETINIB
     Dosage: 2 MG, QD
     Route: 048
     Dates: start: 20190624, end: 20190705

REACTIONS (29)
  - White blood cell count decreased [Recovered/Resolved]
  - Anaemia [Recovered/Resolved]
  - White blood cell count decreased [Recovered/Resolved]
  - Platelet count decreased [Recovering/Resolving]
  - Hypocalcaemia [Recovered/Resolved]
  - Neutrophil count decreased [Recovered/Resolved]
  - Anaemia [Recovering/Resolving]
  - Alanine aminotransferase increased [Recovered/Resolved]
  - Neutrophil count decreased [Recovered/Resolved]
  - Confusional state [Recovered/Resolved]
  - Hypocalcaemia [Recovered/Resolved]
  - Platelet count decreased [Recovered/Resolved]
  - Chills [Recovered/Resolved]
  - Hyponatraemia [Recovered/Resolved]
  - CD4 lymphocytes decreased [Recovered/Resolved]
  - Peripheral motor neuropathy [Recovered/Resolved]
  - Pyrexia [Recovered/Resolved]
  - Hyperglycaemia [Recovered/Resolved]
  - Hypoalbuminaemia [Recovered/Resolved]
  - Hypokalaemia [Recovered/Resolved]
  - Blood bilirubin increased [Recovered/Resolved]
  - Hypophosphataemia [Recovered/Resolved]
  - Blood alkaline phosphatase increased [Recovered/Resolved]
  - Hyponatraemia [Recovered/Resolved]
  - Pyrexia [Recovered/Resolved]
  - Aspartate aminotransferase increased [Recovered/Resolved]
  - Hypokalaemia [Recovered/Resolved]
  - Confusional state [Recovered/Resolved]
  - Fatigue [Recovered/Resolved]

NARRATIVE: CASE EVENT DATE: 20190615
